FAERS Safety Report 24461086 (Version 1)
Quarter: 2024Q4

REPORT INFORMATION
  Report Type: Report from Study
  Country: US (occurrence: US)
  Receive Date: 20241018
  Receipt Date: 20241018
  Transmission Date: 20250114
  Serious: No
  Sender: ROCHE
  Company Number: US-ROCHE-3532288

PATIENT
  Age: 61 Year
  Sex: Female
  Weight: 77.11 kg

DRUGS (6)
  1. RITUXIMAB [Suspect]
     Active Substance: RITUXIMAB
     Indication: Multifocal motor neuropathy
     Dosage: DATE OF SERVICE 27/MAY/2022, 03/JUN/2022
     Route: 042
     Dates: start: 2018, end: 202205
  2. RITUXIMAB [Suspect]
     Active Substance: RITUXIMAB
     Indication: Congenital neuropathy
     Route: 042
     Dates: start: 20220527
  3. RITUXIMAB [Suspect]
     Active Substance: RITUXIMAB
     Indication: Polyneuropathy
     Route: 042
     Dates: start: 20220703
  4. RITUXIMAB [Suspect]
     Active Substance: RITUXIMAB
     Indication: Monoclonal gammopathy
  5. RITUXIMAB [Suspect]
     Active Substance: RITUXIMAB
     Indication: Intensive care unit acquired weakness
  6. PROTONIX [Concomitant]
     Active Substance: PANTOPRAZOLE SODIUM
     Indication: Gastrooesophageal reflux disease
     Dosage: THE PATIENT STATED SHE BEGAN IT 4 MONTHS AGO, FURTHER CLARIFIED AS THE END OF //2023
     Route: 048
     Dates: start: 2023

REACTIONS (5)
  - Illness [Unknown]
  - Anxiety [Unknown]
  - Off label use [Unknown]
  - Pharyngeal swelling [Not Recovered/Not Resolved]
  - Motor dysfunction [Not Recovered/Not Resolved]

NARRATIVE: CASE EVENT DATE: 20180101
